FAERS Safety Report 10738055 (Version 3)
Quarter: 2015Q1

REPORT INFORMATION
  Report Type: Spontaneous
  Country: DE (occurrence: DE)
  Receive Date: 20150126
  Receipt Date: 20150330
  Transmission Date: 20150721
  Serious: Yes (Hospitalization)
  Sender: FDA-Public Use
  Company Number: DE-OTSUKA-US-2015-10339

PATIENT

DRUGS (7)
  1. ATRA [Suspect]
     Active Substance: TRETINOIN
     Indication: ACUTE MYELOID LEUKAEMIA
     Dosage: 90 MG MILLIGRAM(S), UNKNOWN
     Route: 065
     Dates: end: 20150111
  2. MEROPENEM. [Concomitant]
     Active Substance: MEROPENEM
     Indication: FEBRILE NEUTROPENIA
     Dosage: UNK UNK, UNKNOWN
     Route: 042
     Dates: end: 20150108
  3. LINEZOLID. [Concomitant]
     Active Substance: LINEZOLID
     Indication: FEBRILE NEUTROPENIA
     Dosage: UNK UNK, UNKNOWN
     Route: 048
     Dates: end: 20150108
  4. METRONIDAZOLE. [Concomitant]
     Active Substance: METRONIDAZOLE
     Indication: ENTERITIS
     Dosage: UNK UNK, UNKNOWN
     Route: 048
     Dates: end: 20150108
  5. DACOGEN [Suspect]
     Active Substance: DECITABINE
     Indication: ACUTE MYELOID LEUKAEMIA
     Dosage: 40 MG MILLIGRAM(S), IN 1 DAY
     Route: 042
     Dates: start: 20141215, end: 20141219
  6. PIPERACILLIN AND TAZOBACTAM [Concomitant]
     Active Substance: PIPERACILLIN SODIUM\TAZOBACTAM SODIUM
     Indication: FEBRILE NEUTROPENIA
     Dosage: UNK UNK, UNKNOWN
     Route: 042
     Dates: start: 20141229
  7. METRONIDAZOLE. [Concomitant]
     Active Substance: METRONIDAZOLE
     Dosage: UNK
     Route: 048
     Dates: start: 20150109

REACTIONS (2)
  - Enteritis [Recovered/Resolved]
  - Urinary tract infection [Recovered/Resolved]

NARRATIVE: CASE EVENT DATE: 20141229
